FAERS Safety Report 5498570-8 (Version None)
Quarter: 2007Q4

REPORT INFORMATION
  Report Type: 
  Country: None (occurrence: None)
  Receive Date: 20071025
  Receipt Date: 20071025
  Transmission Date: 20080405
  Serious: Yes (Hospitalization)
  Sender: FDA-Public Use
  Company Number: None

PATIENT
  Age: 85 Year
  Sex: Male

DRUGS (3)
  1. ASPIRIN [Suspect]
     Indication: CORONARY ARTERY DISEASE
     Dosage: 81MG  EVERY DAY  PO
     Route: 048
     Dates: start: 19920101
  2. IBUPROFEN [Suspect]
     Indication: MUSCULOSKELETAL PAIN
     Dosage: 200MG  BID  PO
     Route: 048
     Dates: start: 20070914, end: 20071004
  3. IBUPROFEN [Suspect]
     Indication: OSTEOARTHRITIS
     Dosage: 200MG  BID  PO
     Route: 048
     Dates: start: 20070914, end: 20071004

REACTIONS (3)
  - CONSTIPATION [None]
  - DUODENAL ULCER HAEMORRHAGE [None]
  - GASTRIC HAEMORRHAGE [None]
